FAERS Safety Report 22220690 (Version 2)
Quarter: 2023Q2

REPORT INFORMATION
  Report Type: Spontaneous
  Country: TN (occurrence: TN)
  Receive Date: 20230417
  Receipt Date: 20230425
  Transmission Date: 20230721
  Serious: Yes (Hospitalization, Other)
  Sender: FDA-Public Use
  Company Number: TN-NOVOPROD-1049368

PATIENT
  Age: 54 Year
  Sex: Male
  Weight: 170 kg

DRUGS (11)
  1. VICTOZA [Suspect]
     Active Substance: LIRAGLUTIDE
     Indication: Type 2 diabetes mellitus
     Dosage: 0.6 MG, QD
     Dates: start: 20230402, end: 20230405
  2. GLUCOPHAGE [Concomitant]
     Active Substance: METFORMIN HYDROCHLORIDE
     Indication: Type 2 diabetes mellitus
     Dosage: 1CP/D (850)
     Route: 048
  3. TORVA [ATORVASTATIN CALCIUM] [Concomitant]
     Indication: Hypertension
     Dosage: 10 1CP/D,
     Route: 048
  4. TORVA [ATORVASTATIN CALCIUM] [Concomitant]
     Indication: Cardiac failure
  5. RAMIPRIL [Concomitant]
     Active Substance: RAMIPRIL
     Indication: Hypertension
     Dosage: 10 1CP/D
     Route: 048
  6. RAMIPRIL [Concomitant]
     Active Substance: RAMIPRIL
     Indication: Cardiac failure
  7. ASPIRIN DL-LYSINE [Concomitant]
     Active Substance: ASPIRIN DL-LYSINE
     Indication: Hypertension
     Dosage: UNK
  8. ASPIRIN DL-LYSINE [Concomitant]
     Active Substance: ASPIRIN DL-LYSINE
     Indication: Cardiac failure
  9. CINCOR [Concomitant]
     Indication: Cardiac failure
  10. CINCOR [Concomitant]
     Indication: Hypertension
     Dosage: 5 1CP/D
  11. JARDIANCE [Concomitant]
     Active Substance: EMPAGLIFLOZIN
     Indication: Type 2 diabetes mellitus
     Dosage: 10 1CP/D
     Dates: start: 20230328

REACTIONS (1)
  - Diabetic ketoacidosis [Recovered/Resolved]

NARRATIVE: CASE EVENT DATE: 20230405
